FAERS Safety Report 20684717 (Version 1)
Quarter: 2022Q2

REPORT INFORMATION
  Report Type: Spontaneous
  Country: US (occurrence: None)
  Receive Date: 20220407
  Receipt Date: 20220407
  Transmission Date: 20220721
  Serious: Yes (Other)
  Sender: FDA-Public Use
  Company Number: 2022A134024

PATIENT
  Age: 37 Year
  Sex: Female

DRUGS (7)
  1. SEROQUEL [Suspect]
     Active Substance: QUETIAPINE FUMARATE
     Indication: Schizoaffective disorder bipolar type
     Dosage: 200 MG, 4 TO 5 TIMES (800 TO 1000 MG) EACH NIGHT FROM 2002 OR 2003.
     Route: 048
  2. SEROQUEL [Suspect]
     Active Substance: QUETIAPINE FUMARATE
     Indication: Schizoaffective disorder bipolar type
     Route: 048
     Dates: start: 201807, end: 201807
  3. QUETIAPINE FUMARATE [Concomitant]
     Active Substance: QUETIAPINE FUMARATE
     Route: 048
  4. XANAX [Concomitant]
     Active Substance: ALPRAZOLAM
  5. LITHIUM [Concomitant]
     Active Substance: LITHIUM
  6. DOXEPIN [Concomitant]
     Active Substance: DOXEPIN
     Indication: Sleep disorder
  7. ZOLOFT [Concomitant]
     Active Substance: SERTRALINE HYDROCHLORIDE

REACTIONS (13)
  - Exposure during pregnancy [Unknown]
  - Abortion spontaneous [Unknown]
  - Hormone level abnormal [Not Recovered/Not Resolved]
  - Heavy menstrual bleeding [Recovered/Resolved]
  - Thrombosis [Recovered/Resolved]
  - Menopause [Not Recovered/Not Resolved]
  - Menstruation irregular [Not Recovered/Not Resolved]
  - Insomnia [Recovered/Resolved]
  - Abnormal behaviour [Not Recovered/Not Resolved]
  - Post-traumatic stress disorder [Not Recovered/Not Resolved]
  - Cyst [Not Recovered/Not Resolved]
  - Disturbance in attention [Not Recovered/Not Resolved]
  - Product use issue [Not Recovered/Not Resolved]

NARRATIVE: CASE EVENT DATE: 20140101
